FAERS Safety Report 5530595-6 (Version None)
Quarter: 2007Q4

REPORT INFORMATION
  Report Type: 
  Country: None (occurrence: None)
  Receive Date: 20071127
  Receipt Date: 20071127
  Transmission Date: 20080405
  Serious: Yes (Other)
  Sender: FDA-Public Use
  Company Number: None

PATIENT
  Age: 60 Year
  Sex: Female
  Weight: 67.1324 kg

DRUGS (1)
  1. CHANTIX [Suspect]
     Dosage: MONTH 2
     Dates: start: 20071001, end: 20071101

REACTIONS (2)
  - ANXIETY [None]
  - TREMOR [None]
